FAERS Safety Report 8187774-1 (Version None)
Quarter: 2012Q1

REPORT INFORMATION
  Report Type: 
  Country: None (occurrence: None)
  Receive Date: 20120306
  Receipt Date: 20120224
  Transmission Date: 20120608
  Serious: Yes (Hospitalization, Other)
  Sender: FDA-Public Use
  Company Number: US-MERCK-1112USA01227

PATIENT
  Age: 70 Year
  Sex: Female
  Weight: 70 kg

DRUGS (7)
  1. CALCIUM (UNSPECIFIED) [Concomitant]
     Dosage: ^600 MG^
     Route: 048
  2. FOSAMAX [Suspect]
     Route: 048
     Dates: start: 20060131, end: 20080101
  3. VITAMINS (UNSPECIFIED) [Concomitant]
     Route: 065
  4. [THERAPY UNSPECIFIED] [Concomitant]
     Indication: HYPERTENSION
     Route: 065
  5. [THERAPY UNSPECIFIED] [Concomitant]
     Indication: HYPERCHOLESTEROLAEMIA
     Route: 048
  6. ALENDRONATE SODIUM [Suspect]
     Route: 048
     Dates: start: 20081110, end: 20100917
  7. ALENDRONATE SODIUM [Suspect]
     Route: 048
     Dates: start: 20080218, end: 20080816

REACTIONS (7)
  - FEMUR FRACTURE [None]
  - UTERINE DISORDER [None]
  - ARTHRITIS [None]
  - HAND FRACTURE [None]
  - CATARACT [None]
  - OSTEOARTHRITIS [None]
  - HEPATITIS [None]
